FAERS Safety Report 13433573 (Version 1)
Quarter: 2017Q2

REPORT INFORMATION
  Report Type: Spontaneous
  Country: BR (occurrence: BR)
  Receive Date: 20170412
  Receipt Date: 20170412
  Transmission Date: 20170830
  Serious: Yes (Other)
  Sender: FDA-Public Use
  Company Number: BR-BAYER-2017-065952

PATIENT
  Age: 80 Year
  Sex: Female

DRUGS (2)
  1. ASPIRINA 100 MG [Suspect]
     Active Substance: ASPIRIN
     Indication: ARRHYTHMIA
     Dosage: 100 MG, QD
     Dates: start: 2011
  2. ASPIRINA 100 MG [Suspect]
     Active Substance: ASPIRIN
     Indication: ARRHYTHMIA
     Dosage: UNSPECIFIED DOSE, DILUTED IN WATER, VIA NASOGASTRIC TUBE
     Route: 050
     Dates: start: 20161224

REACTIONS (3)
  - Wrong technique in product usage process [None]
  - Cerebrovascular accident [None]
  - Product use in unapproved indication [None]

NARRATIVE: CASE EVENT DATE: 2011
